FAERS Safety Report 14935065 (Version 1)
Quarter: 2018Q2

REPORT INFORMATION
  Report Type: Spontaneous
  Country: US (occurrence: US)
  Receive Date: 20180506
  Receipt Date: 20180506
  Transmission Date: 20180711
  Serious: Yes (Other)
  Sender: FDA-Public Use
  Company Number: None

PATIENT
  Age: 4 Year
  Sex: Female
  Weight: 15.3 kg

DRUGS (1)
  1. POLYETHYLENE GLYCOL [Suspect]
     Active Substance: POLYETHYLENE GLYCOLS
     Indication: CONSTIPATION
     Dosage: ?          QUANTITY:8.5 GRAMS;?
     Route: 048
     Dates: start: 20170301, end: 20180427

REACTIONS (4)
  - Aggression [None]
  - Dysphemia [None]
  - Intentional self-injury [None]
  - Conversion disorder [None]

NARRATIVE: CASE EVENT DATE: 20180416
